FAERS Safety Report 11174790 (Version 1)
Quarter: 2015Q2

REPORT INFORMATION
  Report Type: Spontaneous
  Country: US (occurrence: US)
  Receive Date: 20150609
  Receipt Date: 20150609
  Transmission Date: 20150821
  Serious: Yes (Life-Threatening, Hospitalization, Other)
  Sender: FDA-Public Use
  Company Number: US-BAYER-2015-307651

PATIENT
  Age: 53 Year
  Sex: Male

DRUGS (2)
  1. CIPRO [Suspect]
     Active Substance: CIPROFLOXACIN HYDROCHLORIDE
     Indication: CYSTITIS
     Dosage: 2 DF, UNK
     Route: 048
     Dates: start: 20150520
  2. COUMADIN [Interacting]
     Active Substance: WARFARIN SODIUM
     Dosage: UNK

REACTIONS (12)
  - Myocardial necrosis marker increased [Recovering/Resolving]
  - International normalised ratio increased [Recovering/Resolving]
  - Diverticulum [Recovering/Resolving]
  - Irritability [Recovering/Resolving]
  - Dehydration [Recovering/Resolving]
  - Hypertension [Recovering/Resolving]
  - Myocardial infarction [Recovering/Resolving]
  - Haemorrhage [Recovering/Resolving]
  - Drug interaction [Recovering/Resolving]
  - Asthenia [None]
  - Intestinal haemorrhage [Recovering/Resolving]
  - Fatigue [None]

NARRATIVE: CASE EVENT DATE: 20150521
